FAERS Safety Report 13492182 (Version 13)
Quarter: 2017Q3

REPORT INFORMATION
  Report Type: Spontaneous
  Country: CA (occurrence: CA)
  Receive Date: 20170427
  Receipt Date: 20170802
  Transmission Date: 20171127
  Serious: Yes (Other)
  Sender: FDA-Public Use
  Company Number: CA-ROCHE-1901737

PATIENT
  Age: 51 Year
  Sex: Female

DRUGS (52)
  1. PREDNISONE. [Suspect]
     Active Substance: PREDNISONE
     Dosage: FOR FIVE DAYS
     Route: 065
  2. PREDNISONE. [Suspect]
     Active Substance: PREDNISONE
     Route: 065
  3. ZENHALE [Concomitant]
     Active Substance: FORMOTEROL FUMARATE\MOMETASONE FUROATE
     Indication: PRODUCT USED FOR UNKNOWN INDICATION
     Route: 065
     Dates: end: 201201
  4. XOLAIR [Suspect]
     Active Substance: OMALIZUMAB
     Route: 058
     Dates: start: 20170626
  5. XOLAIR [Suspect]
     Active Substance: OMALIZUMAB
     Route: 058
     Dates: start: 20170721
  6. VENTOLIN [Suspect]
     Active Substance: ALBUTEROL SULFATE
     Indication: DYSPNOEA
     Route: 065
     Dates: start: 20110530
  7. VENTOLIN [Suspect]
     Active Substance: ALBUTEROL SULFATE
     Indication: ASTHMA
     Route: 065
  8. VENTOLIN [Suspect]
     Active Substance: ALBUTEROL SULFATE
     Route: 065
  9. PREDNISONE. [Suspect]
     Active Substance: PREDNISONE
     Route: 065
     Dates: start: 20160720
  10. GAVISCON (CANADA) [Concomitant]
     Dosage: 1 DF, BID
     Route: 048
  11. XOLAIR [Suspect]
     Active Substance: OMALIZUMAB
     Route: 058
     Dates: start: 20170308
  12. XOLAIR [Suspect]
     Active Substance: OMALIZUMAB
     Route: 058
     Dates: start: 20170419
  13. XOLAIR [Suspect]
     Active Substance: OMALIZUMAB
     Route: 058
     Dates: start: 20170530
  14. PREDNISONE. [Suspect]
     Active Substance: PREDNISONE
     Indication: DYSPNOEA
     Route: 065
  15. PREDNISONE. [Suspect]
     Active Substance: PREDNISONE
     Dosage: 50 MG FOR 4 DAYS (TAPERED DOSE)
     Route: 065
     Dates: start: 20141024
  16. PREDNISONE. [Suspect]
     Active Substance: PREDNISONE
     Dosage: WILL BE TAPERED FOR 17 MORE DAYS
     Route: 065
     Dates: start: 20160511
  17. PREDNISONE. [Suspect]
     Active Substance: PREDNISONE
     Route: 065
     Dates: start: 20170425
  18. ALVESCO [Concomitant]
     Active Substance: CICLESONIDE
     Indication: PRODUCT USED FOR UNKNOWN INDICATION
     Dosage: 2 DF, QID
     Route: 065
  19. DILTIAZEM. [Concomitant]
     Active Substance: DILTIAZEM
     Indication: PRODUCT USED FOR UNKNOWN INDICATION
     Dosage: QD
     Route: 065
  20. XOLAIR [Suspect]
     Active Substance: OMALIZUMAB
     Route: 058
     Dates: start: 20170613
  21. VENTOLIN [Suspect]
     Active Substance: ALBUTEROL SULFATE
     Indication: HYPERSENSITIVITY
     Route: 065
     Dates: start: 20131124
  22. VENTOLIN [Suspect]
     Active Substance: ALBUTEROL SULFATE
     Route: 065
  23. PREDNISONE. [Suspect]
     Active Substance: PREDNISONE
     Route: 065
     Dates: start: 201410
  24. PREDNISONE. [Suspect]
     Active Substance: PREDNISONE
     Dosage: 50 MG FOR SEVEN DAYS WITH WEANING ORDERS (10 MG EVERY 3 DAYS)
     Route: 065
     Dates: start: 20141023
  25. PREDNISONE. [Suspect]
     Active Substance: PREDNISONE
     Dosage: 50 MG FOR FIVE MORE 5 DAYS AND THEN TAPERED DOSE
     Route: 065
     Dates: end: 20150115
  26. PREDNISONE. [Suspect]
     Active Substance: PREDNISONE
     Route: 065
     Dates: start: 20150204
  27. PREDNISONE. [Suspect]
     Active Substance: PREDNISONE
     Route: 065
     Dates: start: 20150302
  28. PREDNISONE. [Suspect]
     Active Substance: PREDNISONE
     Route: 065
     Dates: start: 20150925
  29. PREDNISONE. [Suspect]
     Active Substance: PREDNISONE
     Route: 065
  30. PREDNISONE. [Suspect]
     Active Substance: PREDNISONE
     Route: 065
     Dates: start: 20160314, end: 20160318
  31. PREDNISONE. [Suspect]
     Active Substance: PREDNISONE
     Route: 065
     Dates: start: 20170427
  32. COMBIVENT [Concomitant]
     Active Substance: ALBUTEROL SULFATE\IPRATROPIUM BROMIDE
     Indication: PRODUCT USED FOR UNKNOWN INDICATION
     Dosage: 20 UG, UNK
     Route: 065
     Dates: start: 201507
  33. GAVISCON (CANADA) [Concomitant]
     Indication: PRODUCT USED FOR UNKNOWN INDICATION
     Dosage: 1 DF, QID
     Route: 048
  34. TUMS [Concomitant]
     Active Substance: CALCIUM CARBONATE
     Indication: PRODUCT USED FOR UNKNOWN INDICATION
     Dosage: 1 DF, UNK
     Route: 065
  35. ATROVENT [Concomitant]
     Active Substance: IPRATROPIUM BROMIDE
     Indication: PRODUCT USED FOR UNKNOWN INDICATION
     Dosage: 2 DF, QID
     Route: 065
  36. VENTOLIN [Suspect]
     Active Substance: ALBUTEROL SULFATE
     Indication: COUGH
     Route: 065
     Dates: start: 20120819
  37. VENTOLIN [Suspect]
     Active Substance: ALBUTEROL SULFATE
     Route: 055
  38. PREDNISONE. [Suspect]
     Active Substance: PREDNISONE
     Route: 065
     Dates: start: 201704, end: 20170424
  39. XOLAIR [Suspect]
     Active Substance: OMALIZUMAB
     Indication: ASTHMA
     Route: 058
     Dates: start: 20110210
  40. XOLAIR [Suspect]
     Active Substance: OMALIZUMAB
     Route: 058
     Dates: start: 20170710
  41. PREDNISONE. [Suspect]
     Active Substance: PREDNISONE
     Dosage: 50 MG FOR 5 DAYS
     Route: 065
     Dates: start: 20141203, end: 20141207
  42. PREDNISONE. [Suspect]
     Active Substance: PREDNISONE
     Route: 065
     Dates: start: 20170214, end: 20170225
  43. ADVAIR HFA [Concomitant]
     Active Substance: FLUTICASONE PROPIONATE\SALMETEROL XINAFOATE
     Indication: PRODUCT USED FOR UNKNOWN INDICATION
     Dosage: 500 OT
     Route: 055
     Dates: start: 201201
  44. ADVAIR HFA [Concomitant]
     Active Substance: FLUTICASONE PROPIONATE\SALMETEROL XINAFOATE
     Dosage: 500 OT, (1 DOSE)
     Route: 055
  45. DEXILANT [Concomitant]
     Active Substance: DEXLANSOPRAZOLE
     Indication: PRODUCT USED FOR UNKNOWN INDICATION
     Dosage: 1 DF, QD
     Route: 065
  46. XOLAIR [Suspect]
     Active Substance: OMALIZUMAB
     Route: 058
     Dates: start: 20170208
  47. XOLAIR [Suspect]
     Active Substance: OMALIZUMAB
     Route: 058
     Dates: start: 20170515
  48. VENTOLIN [Suspect]
     Active Substance: ALBUTEROL SULFATE
     Indication: CHEST DISCOMFORT
     Route: 065
     Dates: start: 20160103
  49. PREDNISONE. [Suspect]
     Active Substance: PREDNISONE
     Indication: CHEST DISCOMFORT
     Route: 065
     Dates: start: 20140214, end: 20140218
  50. VENTOLIN [Suspect]
     Active Substance: ALBUTEROL SULFATE
     Route: 065
  51. PREDNISONE. [Suspect]
     Active Substance: PREDNISONE
     Indication: ASTHMA
     Route: 065
     Dates: start: 20121101, end: 20121105
  52. SPIRIVA [Concomitant]
     Active Substance: TIOTROPIUM BROMIDE MONOHYDRATE
     Indication: PRODUCT USED FOR UNKNOWN INDICATION
     Dosage: 2 DF, QD
     Route: 065

REACTIONS (13)
  - Crepitations [Recovered/Resolved]
  - Malaise [Not Recovered/Not Resolved]
  - Pyrexia [Recovered/Resolved]
  - Pulmonary function test abnormal [Unknown]
  - Insomnia [Unknown]
  - Abdominal discomfort [Unknown]
  - Lower respiratory tract congestion [Not Recovered/Not Resolved]
  - Nasopharyngitis [Unknown]
  - Heart rate increased [Unknown]
  - Hypersensitivity [Unknown]
  - Pulmonary function test decreased [Unknown]
  - Breath odour [Unknown]
  - Brain hypoxia [Unknown]

NARRATIVE: CASE EVENT DATE: 201207
